FAERS Safety Report 11848221 (Version 7)
Quarter: 2018Q3

REPORT INFORMATION
  Report Type: Spontaneous
  Country: FR (occurrence: FR)
  Receive Date: 20151217
  Receipt Date: 20180912
  Transmission Date: 20181010
  Serious: Yes (Congenital Anomaly, Other)
  Sender: FDA-Public Use
  Company Number: FR-GILEAD-2015-0188281

PATIENT
  Age: 1 Day
  Sex: Female
  Weight: 2.82 kg

DRUGS (5)
  1. TRUVADA [Suspect]
     Active Substance: EMTRICITABINE\TENOFOVIR DISOPROXIL FUMARATE
     Indication: HIV INFECTION
     Dosage: 200MG/245MG, QD
     Route: 064
     Dates: start: 201312, end: 20151115
  2. ISENTRESS [Suspect]
     Active Substance: RALTEGRAVIR POTASSIUM
     Dosage: 400 MG, BID
     Route: 064
     Dates: start: 20150306, end: 20151115
  3. INSULINE                           /01223401/ [Concomitant]
     Active Substance: INSULIN NOS
     Indication: GESTATIONAL DIABETES
     Dosage: 6 IU, QD
     Route: 064
     Dates: start: 201511
  4. TRUVADA [Suspect]
     Active Substance: EMTRICITABINE\TENOFOVIR DISOPROXIL FUMARATE
     Dosage: 200/245 MG, UNK
     Route: 064
     Dates: start: 20150306, end: 20151115
  5. ISENTRESS [Suspect]
     Active Substance: RALTEGRAVIR POTASSIUM
     Indication: HIV INFECTION
     Dosage: 400 MG, BID
     Route: 064
     Dates: start: 201312, end: 20151115

REACTIONS (5)
  - Foetal arrhythmia [Unknown]
  - Cardiac murmur [Unknown]
  - Congenital genital malformation female [Not Recovered/Not Resolved]
  - Foetal exposure during pregnancy [Recovered/Resolved]
  - Enlarged clitoris [Not Recovered/Not Resolved]

NARRATIVE: CASE EVENT DATE: 20150306
